FAERS Safety Report 7466014-2 (Version None)
Quarter: 2011Q2

REPORT INFORMATION
  Report Type: 
  Country: None (occurrence: None)
  Receive Date: 20110509
  Receipt Date: 20100603
  Transmission Date: 20111010
  Serious: No
  Sender: FDA-Public Use
  Company Number: US-ALEXION-A201000634

PATIENT
  Sex: Female

DRUGS (8)
  1. OXYCONTIN [Concomitant]
     Indication: PAIN
     Dosage: 40 MG, BID
     Route: 048
  2. SOLIRIS [Suspect]
     Indication: PAROXYSMAL NOCTURNAL HAEMOGLOBINURIA
     Dosage: 600 MG, QW
     Route: 042
     Dates: start: 20070530, end: 20070620
  3. SOLIRIS [Suspect]
     Dosage: 900 MG, Q2W
     Route: 042
     Dates: start: 20070628
  4. SPIRONOLACTONE [Suspect]
     Indication: OEDEMA PERIPHERAL
     Dosage: UNK
     Dates: end: 20100622
  5. PROTONIX [Concomitant]
     Indication: ABDOMINAL PAIN
     Dosage: 40 MG, QD
     Route: 048
  6. POTASSIUM [Concomitant]
     Dosage: 10 MEQ, QD
  7. ARIXTRA [Concomitant]
     Dosage: 5 MG, QD
     Route: 058
  8. EXJADE [Concomitant]
     Indication: IRON OVERLOAD
     Dosage: 2500 MG, QD

REACTIONS (8)
  - OROPHARYNGEAL PAIN [None]
  - OEDEMA PERIPHERAL [None]
  - DYSPNOEA [None]
  - POLLAKIURIA [None]
  - HAEMOGLOBIN DECREASED [None]
  - HEADACHE [None]
  - PYREXIA [None]
  - FATIGUE [None]
